FAERS Safety Report 7627889-7 (Version None)
Quarter: 2011Q3

REPORT INFORMATION
  Report Type: 
  Country: None (occurrence: None)
  Receive Date: 20110721
  Receipt Date: 20110713
  Transmission Date: 20111222
  Serious: Yes (Hospitalization, Other)
  Sender: FDA-Public Use
  Company Number: US-RB-028401-11

PATIENT
  Age: 31 Year
  Sex: Male

DRUGS (2)
  1. CRACK COCAINE [Suspect]
     Indication: PRODUCT USED FOR UNKNOWN INDICATION
     Dosage: UNKNOWN DOSING DETAILS
     Route: 065
  2. SUBOXONE [Suspect]
     Indication: DRUG DEPENDENCE
     Dosage: SUBLINGUAL FILM
     Route: 060
     Dates: start: 20101001

REACTIONS (5)
  - HALLUCINATION [None]
  - UNDERDOSE [None]
  - DRUG DEPENDENCE [None]
  - EMOTIONAL DISTRESS [None]
  - DRUG ABUSE [None]
